FAERS Safety Report 14678225 (Version 3)
Quarter: 2018Q4

REPORT INFORMATION
  Report Type: Report from Study
  Country: None (occurrence: ES)
  Receive Date: 20180326
  Receipt Date: 20181123
  Transmission Date: 20190204
  Serious: Yes (Other)
  Sender: FDA-Public Use
  Company Number: ES-ABBVIE-17P-144-1827410-00

PATIENT
  Age: 70 Year
  Sex: Female
  Weight: 47 kg

DRUGS (3)
  1. DUODOPA [Suspect]
     Active Substance: CARBIDOPA\LEVODOPA
     Route: 050
     Dates: start: 20181113
  2. MADOPAR [Suspect]
     Active Substance: BENSERAZIDE HYDROCHLORIDE\LEVODOPA
     Indication: PARKINSON^S DISEASE
     Route: 065
  3. DUODOPA [Suspect]
     Active Substance: CARBIDOPA\LEVODOPA
     Indication: PARKINSON^S DISEASE
     Dosage: MD:14 ML. CD: 3.1 ML/H, ED: 3.7 ML
     Route: 050
     Dates: start: 201510, end: 20181015

REACTIONS (11)
  - High density lipoprotein increased [Unknown]
  - Depressed mood [Not Recovered/Not Resolved]
  - Freezing phenomenon [Recovering/Resolving]
  - Constipation [Unknown]
  - On and off phenomenon [Unknown]
  - Abdominal pain [Unknown]
  - Weight decreased [Recovering/Resolving]
  - Pelvic fracture [Not Recovered/Not Resolved]
  - Fall [Recovering/Resolving]
  - Decreased appetite [Not Recovered/Not Resolved]
  - Gait disturbance [Not Recovered/Not Resolved]

NARRATIVE: CASE EVENT DATE: 201510
